FAERS Safety Report 10932840 (Version 1)
Quarter: 2015Q1

REPORT INFORMATION
  Report Type: Spontaneous
  Country: US (occurrence: None)
  Receive Date: 20150212
  Receipt Date: 20150212
  Transmission Date: 20150721
  Serious: No
  Sender: FDA-Public Use
  Company Number: TPA2011A02103

PATIENT
  Age: 47 Year
  Sex: Male
  Weight: 151.96 kg

DRUGS (18)
  1. OXYGEN. [Concomitant]
     Active Substance: OXYGEN
  2. VICODIN (PARACETAMOL, HYDROCODONE BITARTRATE) [Concomitant]
  3. LANSOPRAZOLE. [Concomitant]
     Active Substance: LANSOPRAZOLE
  4. TRICOR [Concomitant]
     Active Substance: FENOFIBRATE
  5. ADVAIR DISKUS [Concomitant]
     Active Substance: FLUTICASONE PROPIONATE\SALMETEROL XINAFOATE
  6. BUPROPION [Concomitant]
     Active Substance: BUPROPION
  7. MAGNESIUM [Concomitant]
     Active Substance: MAGNESIUM
  8. BABY ASPIRIN (ACETYLSALICYLIC ACID) [Concomitant]
     Active Substance: ASPIRIN
  9. NITROSTAT (GLYCERYL TRINITRATE) [Concomitant]
  10. PROVENTIL (SALBUTAMOL SULFATE) [Concomitant]
  11. SIMVASTATIN. [Concomitant]
     Active Substance: SIMVASTATIN
  12. VITAMIN D (ERGOCALCIFEROL) [Concomitant]
     Active Substance: ERGOCALCIFEROL
  13. MELOXICAM. [Concomitant]
     Active Substance: MELOXICAM
  14. COLYCRYS (CHLCHICINE) [Concomitant]
  15. EXFORGE (AMLODIPINE, VALSARTAN) [Concomitant]
  16. FUROSEMIDE. [Concomitant]
     Active Substance: FUROSEMIDE
  17. ULORIC [Suspect]
     Active Substance: FEBUXOSTAT
     Indication: GOUT
     Route: 048
     Dates: start: 201006
  18. PROBENECID. [Concomitant]
     Active Substance: PROBENECID

REACTIONS (4)
  - Vomiting [None]
  - Drug ineffective [None]
  - Nausea [None]
  - Arthritis [None]

NARRATIVE: CASE EVENT DATE: 201012
